FAERS Safety Report 5896983-3 (Version None)
Quarter: 2008Q3

REPORT INFORMATION
  Report Type: 
  Country: None (occurrence: None)
  Receive Date: 20080924
  Receipt Date: 20080114
  Transmission Date: 20090109
  Serious: No
  Sender: FDA-Public Use
  Company Number: US-ASTRAZENECA-2008UW00981

PATIENT
  Age: 51 Year
  Sex: Female
  Weight: 63.5 kg

DRUGS (5)
  1. SEROQUEL [Suspect]
     Indication: BIPOLAR DISORDER
     Dosage: 1300-1600 MG DAILY FOR APPROXIMATELY 2-3 YEARS
  2. SEROQUEL [Suspect]
     Indication: BIPOLAR I DISORDER
     Dosage: 1300-1600 MG DAILY FOR APPROXIMATELY 2-3 YEARS
  3. DEPAKOTE [Concomitant]
  4. TOPAMAX [Concomitant]
  5. KLONOPIN [Concomitant]

REACTIONS (1)
  - BIPOLAR I DISORDER [None]
